FAERS Safety Report 5301001-1 (Version None)
Quarter: 2007Q2

REPORT INFORMATION
  Report Type: 
  Country: None (occurrence: None)
  Receive Date: 20070418
  Receipt Date: 20070122
  Transmission Date: 20071010
  Serious: No
  Sender: FDA-Public Use
  Company Number: US-AMGEN-US207928

PATIENT
  Sex: Male
  Weight: 76 kg

DRUGS (10)
  1. SENSIPAR [Suspect]
     Indication: HYPERPARATHYROIDISM SECONDARY
     Route: 048
     Dates: start: 20060921
  2. SENSIPAR [Suspect]
     Route: 048
     Dates: start: 20061221
  3. SENSIPAR [Suspect]
     Route: 048
     Dates: start: 20070118
  4. PHOSLO [Concomitant]
     Route: 065
     Dates: start: 20060826
  5. NORVASC [Concomitant]
     Route: 065
  6. LABETALOL HCL [Concomitant]
     Route: 065
  7. DIOVAN [Concomitant]
     Route: 065
  8. ZEMPLAR [Concomitant]
     Route: 042
  9. CLONIDINE [Concomitant]
     Route: 065
  10. EPOGEN [Concomitant]
     Route: 042

REACTIONS (2)
  - RASH [None]
  - URTICARIA [None]
